FAERS Safety Report 5668233-4 (Version None)
Quarter: 2008Q1

REPORT INFORMATION
  Report Type: 
  Country: None (occurrence: None)
  Receive Date: 20080313
  Receipt Date: 20080303
  Transmission Date: 20080703
  Serious: Yes (Other)
  Sender: FDA-Public Use
  Company Number: 2008005356

PATIENT
  Sex: Male

DRUGS (2)
  1. NICORETTE [Suspect]
     Dosage: ONE PATCH, TRANSDERMAL
     Route: 062
     Dates: start: 20080302
  2. NICOTINE GUM (NICOTINE) [Suspect]
     Dosage: AMOUNT 4 MG
     Route: 048

REACTIONS (3)
  - DIZZINESS [None]
  - HALLUCINATION [None]
  - MUSCULAR WEAKNESS [None]
